FAERS Safety Report 25278983 (Version 2)
Quarter: 2025Q2

REPORT INFORMATION
  Report Type: Spontaneous
  Country: GB (occurrence: GB)
  Receive Date: 20250507
  Receipt Date: 20250603
  Transmission Date: 20250717
  Serious: Yes (Death, Hospitalization, Other)
  Sender: AUROBINDO
  Company Number: GB-BAXTER-2025BAX014265

PATIENT
  Age: 2 Year
  Sex: Male
  Weight: 14 kg

DRUGS (52)
  1. HYDROCORTISONE [Suspect]
     Active Substance: HYDROCORTISONE
     Indication: Acute myeloid leukaemia
     Route: 065
     Dates: start: 20250211
  2. HYDROCORTISONE [Suspect]
     Active Substance: HYDROCORTISONE
     Route: 065
     Dates: start: 20250214
  3. HYDROCORTISONE [Suspect]
     Active Substance: HYDROCORTISONE
     Route: 065
     Dates: start: 20250217
  4. HYDROCORTISONE [Suspect]
     Active Substance: HYDROCORTISONE
     Route: 065
     Dates: start: 20250219
  5. HYDROCORTISONE [Suspect]
     Active Substance: HYDROCORTISONE
     Route: 065
     Dates: start: 20250224
  6. HYDROCORTISONE [Suspect]
     Active Substance: HYDROCORTISONE
     Route: 065
     Dates: start: 20250226
  7. FUROSEMIDE [Suspect]
     Active Substance: FUROSEMIDE
     Indication: Product used for unknown indication
     Route: 065
  8. MITOXANTRONE [Suspect]
     Active Substance: MITOXANTRONE HYDROCHLORIDE
     Indication: Acute myeloid leukaemia
     Route: 042
     Dates: start: 20250211
  9. MITOXANTRONE [Suspect]
     Active Substance: MITOXANTRONE HYDROCHLORIDE
     Route: 042
     Dates: start: 20250212
  10. MITOXANTRONE [Suspect]
     Active Substance: MITOXANTRONE HYDROCHLORIDE
     Route: 042
     Dates: start: 20250213
  11. MITOXANTRONE [Suspect]
     Active Substance: MITOXANTRONE HYDROCHLORIDE
     Route: 042
     Dates: start: 20250214
  12. SODIUM CHLORIDE [Suspect]
     Active Substance: SODIUM CHLORIDE
     Indication: Acute myeloid leukaemia
     Route: 042
     Dates: start: 20250214
  13. SODIUM CHLORIDE [Suspect]
     Active Substance: SODIUM CHLORIDE
     Indication: Medication dilution
     Route: 042
     Dates: start: 20250217
  14. SODIUM CHLORIDE [Suspect]
     Active Substance: SODIUM CHLORIDE
     Route: 042
     Dates: start: 20250213
  15. SODIUM CHLORIDE [Suspect]
     Active Substance: SODIUM CHLORIDE
     Route: 042
     Dates: start: 20250212
  16. SODIUM CHLORIDE [Suspect]
     Active Substance: SODIUM CHLORIDE
     Route: 042
     Dates: start: 20250211
  17. LACTATED RINGERS SOLUTION [Suspect]
     Active Substance: CALCIUM CHLORIDE\POTASSIUM CHLORIDE\SODIUM CHLORIDE\SODIUM LACTATE
     Indication: Acute myeloid leukaemia
     Route: 042
     Dates: start: 20250211
  18. LACTATED RINGERS SOLUTION [Suspect]
     Active Substance: CALCIUM CHLORIDE\POTASSIUM CHLORIDE\SODIUM CHLORIDE\SODIUM LACTATE
     Route: 042
     Dates: start: 20250212
  19. LACTATED RINGERS SOLUTION [Suspect]
     Active Substance: CALCIUM CHLORIDE\POTASSIUM CHLORIDE\SODIUM CHLORIDE\SODIUM LACTATE
     Route: 042
     Dates: start: 20250213
  20. LACTATED RINGERS SOLUTION [Suspect]
     Active Substance: CALCIUM CHLORIDE\POTASSIUM CHLORIDE\SODIUM CHLORIDE\SODIUM LACTATE
     Route: 042
     Dates: start: 20250214
  21. GEMTUZUMAB OZOGAMICIN [Suspect]
     Active Substance: GEMTUZUMAB OZOGAMICIN
     Indication: Acute myeloid leukaemia
     Route: 042
     Dates: start: 20250214
  22. GEMTUZUMAB OZOGAMICIN [Suspect]
     Active Substance: GEMTUZUMAB OZOGAMICIN
     Route: 042
     Dates: start: 20250217
  23. DEXRAZOXANE [Suspect]
     Active Substance: DEXRAZOXANE
     Indication: Acute myeloid leukaemia
     Route: 042
     Dates: start: 20250211
  24. DEXRAZOXANE [Suspect]
     Active Substance: DEXRAZOXANE
     Route: 042
     Dates: start: 20250212
  25. DEXRAZOXANE [Suspect]
     Active Substance: DEXRAZOXANE
     Route: 042
     Dates: start: 20250213
  26. DEXRAZOXANE [Suspect]
     Active Substance: DEXRAZOXANE
     Route: 042
     Dates: start: 20250214
  27. CYTARABINE [Suspect]
     Active Substance: CYTARABINE
     Indication: Acute myeloid leukaemia
     Route: 065
     Dates: start: 20250211
  28. CYTARABINE [Suspect]
     Active Substance: CYTARABINE
     Route: 065
     Dates: start: 20250214
  29. CYTARABINE [Suspect]
     Active Substance: CYTARABINE
     Route: 042
     Dates: start: 20250215
  30. CYTARABINE [Suspect]
     Active Substance: CYTARABINE
     Route: 065
     Dates: start: 20250217
  31. CYTARABINE [Suspect]
     Active Substance: CYTARABINE
     Route: 042
     Dates: start: 20250217
  32. CYTARABINE [Suspect]
     Active Substance: CYTARABINE
     Route: 042
     Dates: start: 20250219
  33. CYTARABINE [Suspect]
     Active Substance: CYTARABINE
     Route: 042
     Dates: start: 20250220
  34. CYTARABINE [Suspect]
     Active Substance: CYTARABINE
     Route: 065
     Dates: start: 20250226
  35. CYTARABINE [Suspect]
     Active Substance: CYTARABINE
     Route: 042
     Dates: start: 20250213
  36. CYTARABINE [Suspect]
     Active Substance: CYTARABINE
     Route: 042
     Dates: start: 20250216
  37. CYTARABINE [Suspect]
     Active Substance: CYTARABINE
     Route: 065
     Dates: start: 20250219
  38. CYTARABINE [Suspect]
     Active Substance: CYTARABINE
     Route: 042
     Dates: start: 20250211
  39. CYTARABINE [Suspect]
     Active Substance: CYTARABINE
     Route: 042
     Dates: start: 20250213
  40. CYTARABINE [Suspect]
     Active Substance: CYTARABINE
     Route: 042
     Dates: start: 20250214
  41. CYTARABINE [Suspect]
     Active Substance: CYTARABINE
     Route: 042
     Dates: start: 20250215
  42. CYTARABINE [Suspect]
     Active Substance: CYTARABINE
     Route: 042
     Dates: start: 20250219
  43. CYTARABINE [Suspect]
     Active Substance: CYTARABINE
     Route: 042
     Dates: start: 20250216
  44. CYTARABINE [Suspect]
     Active Substance: CYTARABINE
     Dates: start: 20250224
  45. CYTARABINE [Suspect]
     Active Substance: CYTARABINE
     Route: 042
     Dates: start: 20250218
  46. METHOTREXATE [Suspect]
     Active Substance: METHOTREXATE
     Indication: Acute myeloid leukaemia
     Route: 065
     Dates: start: 20250211
  47. METHOTREXATE [Suspect]
     Active Substance: METHOTREXATE
     Route: 065
     Dates: start: 20250214
  48. METHOTREXATE [Suspect]
     Active Substance: METHOTREXATE
     Route: 065
     Dates: start: 20250217
  49. METHOTREXATE [Suspect]
     Active Substance: METHOTREXATE
     Route: 065
     Dates: start: 20250219
  50. METHOTREXATE [Suspect]
     Active Substance: METHOTREXATE
     Route: 065
     Dates: start: 20250224
  51. METHOTREXATE [Suspect]
     Active Substance: METHOTREXATE
     Route: 065
     Dates: start: 20250226
  52. COTRIMOXAZOLE [Suspect]
     Active Substance: SULFAMETHOXAZOLE\TRIMETHOPRIM
     Indication: Product used for unknown indication
     Route: 065

REACTIONS (11)
  - Death [Fatal]
  - Venoocclusive disease [Fatal]
  - Multiple organ dysfunction syndrome [Fatal]
  - Leukaemia [Unknown]
  - Haematemesis [Unknown]
  - Abdominal distension [Unknown]
  - Blood beta-D-glucan increased [Unknown]
  - Weight increased [Unknown]
  - Hepatic function abnormal [Not Recovered/Not Resolved]
  - Mucosal inflammation [Unknown]
  - Abdominal tenderness [Unknown]

NARRATIVE: CASE EVENT DATE: 20250214
